FAERS Safety Report 7083273-9 (Version None)
Quarter: 2010Q4

REPORT INFORMATION
  Report Type: 
  Country: None (occurrence: None)
  Receive Date: 20101027
  Receipt Date: 20101013
  Transmission Date: 20110411
  Serious: Yes (Life-Threatening)
  Sender: FDA-Public Use
  Company Number: 1000016957

PATIENT
  Age: 83 Year
  Sex: Female

DRUGS (5)
  1. MEMANTINE [Suspect]
     Indication: DEMENTIA ALZHEIMER'S TYPE
     Dosage: 20 MG (10 MG,2 IN 1 D),
     Dates: start: 20081201, end: 20100323
  2. ARICEPT [Suspect]
     Indication: DEMENTIA ALZHEIMER'S TYPE
     Dosage: 5 MG (5 MG,1 IN 1 D),ORAL
     Route: 048
     Dates: end: 20100323
  3. EFFEXOR [Suspect]
     Indication: DEPRESSION
     Dosage: 37.5 MG (37.5 MG,1 IN 1 D),ORAL
     Route: 048
     Dates: end: 20100323
  4. NITRODERM [Suspect]
     Dosage: 5 MG (5 MG,1 IN 1 D),TRANSDERMAL
     Route: 062
     Dates: start: 20100322
  5. XANAX (ALPRAZOLAM) (0.25 MILLIGRAM, TABLETS) (ALPRAZOLAM) [Concomitant]

REACTIONS (2)
  - ARRHYTHMIA [None]
  - CARDIO-RESPIRATORY ARREST [None]
